FAERS Safety Report 10068610 (Version 1)
Quarter: 2014Q2

REPORT INFORMATION
  Report Type: Spontaneous
  Country: US (occurrence: US)
  Receive Date: 20140409
  Receipt Date: 20140409
  Transmission Date: 20141212
  Serious: Yes (Hospitalization)
  Sender: FDA-Public Use
  Company Number: US-GLAXOSMITHKLINE-A1067877A

PATIENT
  Age: 66 Year
  Sex: Female

DRUGS (17)
  1. REQUIP XL [Suspect]
     Indication: RESTLESS LEGS SYNDROME
     Dosage: 4MG PER DAY
     Route: 048
  2. PRADAXA [Concomitant]
  3. CLONAZEPAM [Concomitant]
  4. COZAAR [Concomitant]
  5. FUROSEMIDE [Concomitant]
  6. METOPROLOL [Concomitant]
  7. CRESTOR [Concomitant]
  8. TOVIAZ [Concomitant]
  9. SERTRALINE [Concomitant]
  10. OMEPRAZOLE [Concomitant]
  11. LYRICA [Concomitant]
  12. ZOLPIDEM [Concomitant]
  13. HYDROCODONE [Concomitant]
  14. IPRATROPIUM [Concomitant]
  15. AMPHETAMINES [Concomitant]
  16. MIRTAZAPINE [Concomitant]
  17. AMIODARONE [Concomitant]

REACTIONS (3)
  - Surgery [Unknown]
  - Restless legs syndrome [Unknown]
  - Drug ineffective [Unknown]
